FAERS Safety Report 4918306-6 (Version None)
Quarter: 2006Q1

REPORT INFORMATION
  Report Type: 
  Country: None (occurrence: None)
  Receive Date: 20060217
  Receipt Date: 20060217
  Transmission Date: 20060701
  Serious: Yes (Other)
  Sender: FDA-Public Use
  Company Number: None

PATIENT
  Age: 48 Year
  Sex: Male

DRUGS (1)
  1. FLUOROURACIL [Suspect]
     Dosage: 360 MG/DAY CONTINUOUS INF
     Dates: start: 20060112, end: 20060130

REACTIONS (6)
  - ANAL DISCOMFORT [None]
  - CHEST PAIN [None]
  - DIARRHOEA [None]
  - MUCOSAL INFLAMMATION [None]
  - PAIN [None]
  - PHARMACEUTICAL PRODUCT COMPLAINT [None]
